FAERS Safety Report 6545883-4 (Version None)
Quarter: 2010Q1

REPORT INFORMATION
  Report Type: 
  Country: None (occurrence: None)
  Receive Date: 20100121
  Receipt Date: 20090902
  Transmission Date: 20100710
  Serious: No
  Sender: FDA-Public Use
  Company Number: US-ALLERGAN-0912301US

PATIENT
  Sex: Female

DRUGS (1)
  1. AVAGE CREAM 0.1% [Suspect]
     Indication: SKIN DISORDER
     Dosage: UNK
     Route: 061
     Dates: start: 20040101

REACTIONS (2)
  - BLOOD DISORDER [None]
  - NERVOUS SYSTEM DISORDER [None]
